FAERS Safety Report 12802232 (Version 1)
Quarter: 2016Q4

REPORT INFORMATION
  Report Type: Spontaneous
  Country: US (occurrence: US)
  Receive Date: 20161003
  Receipt Date: 20161003
  Transmission Date: 20170207
  Serious: No
  Sender: FDA-Public Use
  Company Number: US-JAZZ-2016-US-012480

PATIENT
  Sex: Female

DRUGS (82)
  1. OXYCODONE [Concomitant]
     Active Substance: OXYCODONE
  2. MAXALT [Concomitant]
     Active Substance: RIZATRIPTAN BENZOATE
  3. TOPROL XL [Concomitant]
     Active Substance: METOPROLOL SUCCINATE
  4. FOLIC ACID. [Concomitant]
     Active Substance: FOLIC ACID
  5. FISH OIL [Concomitant]
     Active Substance: FISH OIL
  6. MELATONIN [Concomitant]
     Active Substance: MELATONIN
  7. TRAMADOL HCL [Concomitant]
     Active Substance: TRAMADOL HYDROCHLORIDE
  8. VITAMIN D [Concomitant]
     Active Substance: CHOLECALCIFEROL
  9. FLONASE [Concomitant]
     Active Substance: FLUTICASONE PROPIONATE
  10. NALTREXONE HCL [Concomitant]
     Active Substance: NALTREXONE HYDROCHLORIDE
  11. DIFLUCAN [Concomitant]
     Active Substance: FLUCONAZOLE
  12. FENTANYL. [Concomitant]
     Active Substance: FENTANYL
  13. NUVIGIL [Concomitant]
     Active Substance: ARMODAFINIL
  14. CALCIUM ANTACID [Concomitant]
     Active Substance: CALCIUM CARBONATE
  15. CLOTRIMAZOLE AND BETAMETHASONE DIPROPIONATE [Concomitant]
     Active Substance: BETAMETHASONE\BETAMETHASONE DIPROPIONATE\CLOTRIMAZOLE
  16. MEPERIDINE HCL [Concomitant]
     Active Substance: MEPERIDINE HYDROCHLORIDE
  17. VENTOLIN HFA [Concomitant]
     Active Substance: ALBUTEROL SULFATE
  18. PYRIDIUM [Concomitant]
     Active Substance: PHENAZOPYRIDINE
  19. ARIXTRA [Concomitant]
     Active Substance: FONDAPARINUX SODIUM
  20. CYCLOSPORINE. [Concomitant]
     Active Substance: CYCLOSPORINE
  21. MECLIZINE HCL [Concomitant]
     Active Substance: MECLIZINE HYDROCHLORIDE
  22. METHOTREXATE. [Concomitant]
     Active Substance: METHOTREXATE
  23. COUMADIN [Concomitant]
     Active Substance: WARFARIN SODIUM
  24. VITAMIN E BEAUTY OIL [Concomitant]
  25. DILAUDID [Concomitant]
     Active Substance: HYDROMORPHONE HYDROCHLORIDE
  26. PHENTERMINE HCL [Concomitant]
     Active Substance: PHENTERMINE HYDROCHLORIDE
  27. ACTOS [Concomitant]
     Active Substance: PIOGLITAZONE HYDROCHLORIDE
  28. DULCOLAX NOS [Concomitant]
     Active Substance: BISACODYL OR DOCUSATE SODIUM
  29. CYMBALTA [Concomitant]
     Active Substance: DULOXETINE HYDROCHLORIDE
  30. GLYSET [Concomitant]
     Active Substance: MIGLITOL
  31. BOTOX [Concomitant]
     Active Substance: ONABOTULINUMTOXINA
  32. LIDOCAINE. [Concomitant]
     Active Substance: LIDOCAINE
  33. MULTIVITAMIN [Concomitant]
     Active Substance: VITAMINS
  34. PERIDEX [Concomitant]
     Active Substance: CHLORHEXIDINE GLUCONATE
  35. MORPHINE SULF [Concomitant]
     Active Substance: MORPHINE SULFATE
  36. COLCRYS [Concomitant]
     Active Substance: COLCHICINE
  37. GAS RELIEF [Concomitant]
     Active Substance: DIMETHICONE
  38. GLYCERIN ADULT [Concomitant]
     Active Substance: GLYCERIN
  39. MIRALAX [Concomitant]
     Active Substance: POLYETHYLENE GLYCOL 3350
  40. CETIRIZINE HCL [Concomitant]
     Active Substance: CETIRIZINE HYDROCHLORIDE
  41. PERCOCET [Concomitant]
     Active Substance: ACETAMINOPHEN\OXYCODONE HYDROCHLORIDE
  42. LODINE [Concomitant]
     Active Substance: ETODOLAC
  43. TOVIAZ [Concomitant]
     Active Substance: FESOTERODINE FUMARATE
  44. LYRICA [Concomitant]
     Active Substance: PREGABALIN
  45. FIORINAL WITH CODEINE [Concomitant]
     Active Substance: ASPIRIN\BUTALBITAL\CAFFEINE\CODEINE PHOSPHATE
  46. DEXAMETHASONE. [Concomitant]
     Active Substance: DEXAMETHASONE
  47. IRON [Concomitant]
     Active Substance: IRON
  48. PHENOBARBITAL. [Concomitant]
     Active Substance: PHENOBARBITAL
  49. PRADAXA [Concomitant]
     Active Substance: DABIGATRAN ETEXILATE MESYLATE
  50. XYREM [Suspect]
     Active Substance: SODIUM OXYBATE
     Indication: NARCOLEPSY
     Dosage: 2.25 G, BID
     Route: 048
     Dates: start: 2012, end: 201208
  51. XYREM [Suspect]
     Active Substance: SODIUM OXYBATE
     Dosage: DOSE ADJUSTMENTS
     Route: 048
     Dates: start: 201208, end: 201308
  52. ZOLPIDEM TARTRATE. [Concomitant]
     Active Substance: ZOLPIDEM TARTRATE
  53. MYRBETRIQ [Concomitant]
     Active Substance: MIRABEGRON
  54. NORETHINDRONE. [Concomitant]
     Active Substance: NORETHINDRONE
  55. LAMICTAL [Concomitant]
     Active Substance: LAMOTRIGINE
  56. MESTINON [Concomitant]
     Active Substance: PYRIDOSTIGMINE BROMIDE
  57. NUVARING [Concomitant]
     Active Substance: ETHINYL ESTRADIOL\ETONOGESTREL
  58. COLACE [Concomitant]
     Active Substance: DOCUSATE SODIUM
  59. MAGNESIUM GLUCONATE [Concomitant]
     Active Substance: MAGNESIUM GLUCONATE
  60. PENNSAID [Concomitant]
     Active Substance: DICLOFENAC SODIUM
  61. SYSTANE (HYPROMELLOSE 2910 (4000 MPA.S)) [Concomitant]
     Active Substance: HYPROMELLOSE 2910 (4000 MPA.S)
  62. XYREM [Suspect]
     Active Substance: SODIUM OXYBATE
     Dosage: 4.5 G, BID
     Route: 048
     Dates: start: 201308, end: 201603
  63. DIAZEPAM. [Concomitant]
     Active Substance: DIAZEPAM
  64. RELPAX [Concomitant]
     Active Substance: ELETRIPTAN HYDROBROMIDE
  65. MAXALT [Concomitant]
     Active Substance: RIZATRIPTAN BENZOATE
  66. PROTONIX [Concomitant]
     Active Substance: PANTOPRAZOLE SODIUM
  67. CELLCEPT [Concomitant]
     Active Substance: MYCOPHENOLATE MOFETIL\MYCOPHENOLATE MOFETIL HYDROCHLORIDE
  68. BISOPROLOL FUMARATE. [Concomitant]
     Active Substance: BISOPROLOL FUMARATE
  69. PREDNISONE. [Concomitant]
     Active Substance: PREDNISONE
  70. ADDERALL [Concomitant]
     Active Substance: AMPHETAMINE ASPARTATE\AMPHETAMINE SULFATE\DEXTROAMPHETAMINE SACCHARATE\DEXTROAMPHETAMINE SULFATE
  71. HYDROCODONE/ACETAMINOPHEN [Concomitant]
     Active Substance: ACETAMINOPHEN\HYDROCODONE
  72. GLUCOSAMINE [Concomitant]
     Active Substance: GLUCOSAMINE
  73. HYDROXYZINE HCL [Concomitant]
     Active Substance: HYDROXYZINE HYDROCHLORIDE
  74. NYSTATIN. [Concomitant]
     Active Substance: NYSTATIN
  75. LEUCOVORIN CALCIUM. [Concomitant]
     Active Substance: LEUCOVORIN CALCIUM
  76. RANITIDINE. [Concomitant]
     Active Substance: RANITIDINE
  77. ACARBOSE. [Concomitant]
     Active Substance: ACARBOSE
  78. CEREFOLIN NAC [Concomitant]
  79. BACLOFEN. [Concomitant]
     Active Substance: BACLOFEN
  80. REMICADE [Concomitant]
     Active Substance: INFLIXIMAB
  81. HAIR, SKIN + NAILS [Concomitant]
     Active Substance: MINERALS\VITAMINS
  82. POTASSIUM [Concomitant]
     Active Substance: POTASSIUM

REACTIONS (3)
  - Gastrointestinal disorder [Unknown]
  - Nausea [Unknown]
  - Vomiting [Unknown]
